FAERS Safety Report 4348591-3 (Version None)
Quarter: 2004Q2

REPORT INFORMATION
  Report Type: 
  Country: None (occurrence: None)
  Receive Date: 20040423
  Receipt Date: 20040412
  Transmission Date: 20050107
  Serious: Yes (Hospitalization)
  Sender: FDA-Public Use
  Company Number: US-JNJFOC-20040402486

PATIENT
  Age: 66 Year
  Sex: Female
  Weight: 92.9874 kg

DRUGS (2)
  1. REMICADE [Suspect]
     Indication: CROHN'S DISEASE
     Dosage: INTRAVENOUS
     Route: 036
     Dates: start: 20040101
  2. PREDNISONE [Suspect]
     Indication: CROHN'S DISEASE

REACTIONS (5)
  - ABDOMINAL DISTENSION [None]
  - CATARACT [None]
  - OSTEOPOROSIS [None]
  - RASH [None]
  - WEIGHT INCREASED [None]
